FAERS Safety Report 7817603-4 (Version None)
Quarter: 2011Q4

REPORT INFORMATION
  Report Type: 
  Country: None (occurrence: None)
  Receive Date: 20111017
  Receipt Date: 20111010
  Transmission Date: 20120403
  Serious: Yes (Other)
  Sender: FDA-Public Use
  Company Number: PHEH2011US06489

PATIENT
  Sex: Female

DRUGS (15)
  1. VIMPAT [Concomitant]
     Dosage: UNK UKN, UNK
  2. FLEXERIL [Concomitant]
     Dosage: UNK UKN, UNK
  3. KLONOPIN [Concomitant]
     Dosage: UNK UKN, UNK
  4. NORCO [Concomitant]
     Dosage: UNK UKN, UNK
  5. OXCARBAZEPINE [Concomitant]
     Dosage: UNK UKN, UNK
  6. PHENTERMINE [Concomitant]
     Dosage: UNK UKN, UNK
  7. GILENYA [Suspect]
     Dosage: 0.5 MG, QD
     Route: 048
     Dates: start: 20110401
  8. ACTHAR [Concomitant]
     Dosage: UNK UKN, UNK
  9. MS CONTIN [Concomitant]
     Dosage: UNK UKN, UNK
  10. FAMPRIDINE [Concomitant]
     Dosage: UNK UKN, UNK
     Dates: start: 20110201
  11. SYNTHROID [Concomitant]
     Indication: THYROID DISORDER
     Dosage: UNK UKN, UNK
  12. NEURONTIN [Concomitant]
     Dosage: UNK UKN, UNK
  13. ZYRTEC [Concomitant]
     Dosage: UNK UKN, UNK
  14. CELEXA [Concomitant]
     Dosage: UNK UKN, UNK
  15. PROPRANOLOL [Concomitant]
     Indication: MIGRAINE PROPHYLAXIS
     Dosage: 10 MG, UNK

REACTIONS (6)
  - LOSS OF CONSCIOUSNESS [None]
  - TREMOR [None]
  - TINNITUS [None]
  - DIZZINESS [None]
  - PALLOR [None]
  - CARDIAC MURMUR [None]
